FAERS Safety Report 16757174 (Version 1)
Quarter: 2019Q3

REPORT INFORMATION
  Report Type: Report from Study
  Country: IT (occurrence: IT)
  Receive Date: 20190829
  Receipt Date: 20190829
  Transmission Date: 20191005
  Serious: Yes (Hospitalization)
  Sender: FDA-Public Use
  Company Number: IT-TEVA-2019-IT-1098964

PATIENT
  Age: 75 Year
  Sex: Male

DRUGS (6)
  1. PEMETREXED DISODIUM [Suspect]
     Active Substance: PEMETREXED DISODIUM
     Indication: LUNG NEOPLASM MALIGNANT
     Dosage: 800 MG
     Route: 042
     Dates: start: 20190503, end: 20190524
  2. FUROSEMIDE. [Concomitant]
     Active Substance: FUROSEMIDE
  3. DEXAMETHASONE. [Concomitant]
     Active Substance: DEXAMETHASONE
  4. CISPLATIN. [Suspect]
     Active Substance: CISPLATIN
     Indication: LUNG NEOPLASM MALIGNANT
     Dosage: 100 MG
     Route: 042
     Dates: start: 20190503, end: 20190524
  5. RANITIDINE. [Concomitant]
     Active Substance: RANITIDINE
  6. AKYNZEO [Concomitant]
     Active Substance: NETUPITANT\PALONOSETRON HYDROCHLORIDE

REACTIONS (5)
  - Vomiting [Recovering/Resolving]
  - Hyperpyrexia [Recovering/Resolving]
  - Leukopenia [Recovering/Resolving]
  - Nausea [Recovering/Resolving]
  - Neutropenia [Recovering/Resolving]

NARRATIVE: CASE EVENT DATE: 20190530
